FAERS Safety Report 25437257 (Version 4)
Quarter: 2025Q3

REPORT INFORMATION
  Report Type: Spontaneous
  Country: EU (occurrence: EU)
  Receive Date: 20250616
  Receipt Date: 20250710
  Transmission Date: 20251021
  Serious: Yes (Hospitalization)
  Sender: Haleon PLC
  Company Number: EU-SANDOZ-SDZ2025DE039752

PATIENT
  Sex: Female

DRUGS (10)
  1. DICLOFENAC [Suspect]
     Active Substance: DICLOFENAC
     Indication: Axial spondyloarthritis
     Dates: start: 20170101, end: 20220104
  2. DICLOFENAC [Suspect]
     Active Substance: DICLOFENAC
     Dates: start: 20240213
  3. COSENTYX [Suspect]
     Active Substance: SECUKINUMAB
     Indication: Axial spondyloarthritis
     Dates: start: 20181129, end: 20190401
  4. ETANERCEPT [Suspect]
     Active Substance: ETANERCEPT
     Indication: Axial spondyloarthritis
     Dates: start: 20190401, end: 20200201
  5. METHOTREXATE [Suspect]
     Active Substance: METHOTREXATE
     Indication: Axial spondyloarthritis
     Route: 058
     Dates: start: 20220104, end: 20221113
  6. REMICADE [Suspect]
     Active Substance: INFLIXIMAB
     Indication: Axial spondyloarthritis
     Dates: start: 20200315, end: 20210503
  7. ADALIMUMAB [Suspect]
     Active Substance: ADALIMUMAB
     Indication: Axial spondyloarthritis
     Dates: start: 20210527, end: 20220104
  8. STELARA [Suspect]
     Active Substance: USTEKINUMAB
     Indication: Axial spondyloarthritis
     Dates: start: 20220617, end: 20230430
  9. IBUPROFEN [Suspect]
     Active Substance: IBUPROFEN
     Indication: Axial spondyloarthritis
     Dates: start: 20220104, end: 20240213
  10. RINVOQ [Suspect]
     Active Substance: UPADACITINIB
     Indication: Axial spondyloarthritis
     Dates: start: 20220201, end: 20220607

REACTIONS (1)
  - Knee arthroplasty [Unknown]

NARRATIVE: CASE EVENT DATE: 20231103
